FAERS Safety Report 19490334 (Version 1)
Quarter: 2021Q3

REPORT INFORMATION
  Report Type: Spontaneous
  Country: FR (occurrence: FR)
  Receive Date: 20210705
  Receipt Date: 20210705
  Transmission Date: 20211014
  Serious: Yes (Hospitalization)
  Sender: FDA-Public Use
  Company Number: FR-AUROBINDO-AUR-APL-2021-028541

PATIENT
  Age: 14 Year
  Sex: Female
  Weight: 70 kg

DRUGS (2)
  1. IBUPROFEN. [Suspect]
     Active Substance: IBUPROFEN
     Indication: POISONING DELIBERATE
     Dosage: UNK, SINGLE TAKE
     Route: 048
     Dates: start: 20210531, end: 20210531
  2. PARACETAMOL [Suspect]
     Active Substance: ACETAMINOPHEN
     Indication: POISONING DELIBERATE
     Dosage: UNK, SINGLE TAKE
     Route: 048
     Dates: start: 20210531, end: 20210531

REACTIONS (3)
  - Prothrombin time ratio decreased [Recovered/Resolved]
  - Vomiting [Recovered/Resolved]
  - Analgesic drug level increased [Recovered/Resolved]

NARRATIVE: CASE EVENT DATE: 20210531
